FAERS Safety Report 10909244 (Version 1)
Quarter: 2015Q1

REPORT INFORMATION
  Report Type: Spontaneous
  Country: US (occurrence: US)
  Receive Date: 20150312
  Receipt Date: 20150312
  Transmission Date: 20150721
  Serious: No
  Sender: FDA-Public Use
  Company Number: US-ASTRAZENECA-2014SE59802

PATIENT
  Age: 71 Year
  Sex: Female

DRUGS (1)
  1. SYMLIN [Suspect]
     Active Substance: PRAMLINTIDE ACETATE
     Dosage: 1 MG/1.5 ML
     Route: 058

REACTIONS (2)
  - Drug dose omission [Unknown]
  - Weight decreased [Unknown]
